FAERS Safety Report 9596843 (Version 1)
Quarter: 2013Q4

REPORT INFORMATION
  Report Type: Spontaneous
  Country: US (occurrence: US)
  Receive Date: 20131004
  Receipt Date: 20131004
  Transmission Date: 20140711
  Serious: Yes (Other)
  Sender: FDA-Public Use
  Company Number: US-ELI_LILLY_AND_COMPANY-US201309009329

PATIENT
  Sex: Female
  Weight: 107.94 kg

DRUGS (12)
  1. HUMALOG 25% LISPRO, 75% NPL [Suspect]
     Indication: TYPE 2 DIABETES MELLITUS
     Dosage: 40 U, EACH MORNING
     Route: 058
  2. HUMALOG 25% LISPRO, 75% NPL [Suspect]
     Dosage: 35 U, EACH EVENING
     Route: 058
  3. INSULIN [Concomitant]
  4. NOVOLOG MIX [Concomitant]
     Dosage: UNK, BID
     Route: 058
  5. LISINOPRIL [Concomitant]
     Dosage: 2 DF, QD
     Route: 048
  6. BUMETANIDE [Concomitant]
     Dosage: 1 MG, UNK
     Route: 048
  7. ACTOS [Concomitant]
     Dosage: 15 MG, BID
     Route: 048
  8. ZETIA [Concomitant]
     Dosage: 10 MG, QD
     Route: 048
  9. LACTULOSE [Concomitant]
     Dosage: UNK, QD
     Route: 048
  10. ASPIRIN [Concomitant]
     Dosage: 81 MG, QD
     Route: 048
  11. VITAMIN D                          /00107901/ [Concomitant]
     Dosage: 2000 U, QD
     Route: 048
  12. LOTRISONE [Concomitant]
     Dosage: 1 DF, BID

REACTIONS (9)
  - Renal failure chronic [Unknown]
  - Hypercholesterolaemia [Unknown]
  - Anaemia [Unknown]
  - Pollakiuria [Unknown]
  - Blood glucose increased [Unknown]
  - Urinary tract infection [Unknown]
  - Diabetes mellitus inadequate control [Unknown]
  - Malaise [Unknown]
  - Oedema [Unknown]
